FAERS Safety Report 25615530 (Version 1)
Quarter: 2025Q3

REPORT INFORMATION
  Report Type: Report from Study
  Country: CA (occurrence: CA)
  Receive Date: 20250729
  Receipt Date: 20250729
  Transmission Date: 20251020
  Serious: Yes (Other)
  Sender: CELLTRION
  Company Number: CA-CELLTRION INC.-2025CA006295

PATIENT

DRUGS (1)
  1. USTEKINUMAB [Suspect]
     Active Substance: USTEKINUMAB
     Indication: Crohn^s disease
     Route: 058
     Dates: start: 20241218

REACTIONS (5)
  - Crohn^s disease [Unknown]
  - Rectal haemorrhage [Unknown]
  - Mucous stools [Unknown]
  - Inflammation [Unknown]
  - Therapeutic response changed [Unknown]
